FAERS Safety Report 4383014-X (Version None)
Quarter: 2004Q2

REPORT INFORMATION
  Report Type: 
  Country: None (occurrence: None)
  Receive Date: 20040526
  Receipt Date: 20031113
  Transmission Date: 20050107
  Serious: Yes (Hospitalization)
  Sender: FDA-Public Use
  Company Number: US_020988349

PATIENT
  Age: 77 Year
  Sex: Male
  Weight: 76 kg

DRUGS (1)
  1. ZYPREXA [Suspect]
     Indication: HALLUCINATION

REACTIONS (7)
  - BLOOD BILIRUBIN INCREASED [None]
  - BLOOD POTASSIUM DECREASED [None]
  - LETHARGY [None]
  - MENTAL IMPAIRMENT [None]
  - PARKINSONISM [None]
  - PYREXIA [None]
  - URINARY TRACT INFECTION [None]
